FAERS Safety Report 9319398 (Version 1)
Quarter: 2013Q2

REPORT INFORMATION
  Report Type: Spontaneous
  Country: US (occurrence: None)
  Receive Date: 20130529
  Receipt Date: 20130529
  Transmission Date: 20140414
  Serious: Yes (Disabling, Other)
  Sender: FDA-Public Use
  Company Number: None

PATIENT
  Age: 73 Year
  Sex: Female
  Weight: 58.97 kg

DRUGS (1)
  1. GLIMEPIRIDE [Suspect]
     Dosage: ONE-TAB/DAY, PER DAY, AM
     Dates: start: 201605, end: 20130511

REACTIONS (3)
  - Abdominal discomfort [None]
  - Nausea [None]
  - Product quality issue [None]
